FAERS Safety Report 6420847-X (Version None)
Quarter: 2009Q4

REPORT INFORMATION
  Report Type: 
  Country: None (occurrence: None)
  Receive Date: 20091030
  Receipt Date: 20091015
  Transmission Date: 20100525
  Serious: Yes (Death)
  Sender: FDA-Public Use
  Company Number: US-BAYER-200934850NA

PATIENT
  Sex: Female

DRUGS (4)
  1. BETASERON [Suspect]
     Indication: RELAPSING-REMITTING MULTIPLE SCLEROSIS
     Route: 058
  2. OXYCONTIN [Concomitant]
  3. TYLENOL W/ CODEINE NO. 3 [Concomitant]
  4. FLEXERIL [Concomitant]

REACTIONS (1)
  - ACCIDENTAL OVERDOSE [None]
